FAERS Safety Report 16474674 (Version 1)
Quarter: 2019Q2

REPORT INFORMATION
  Report Type: Spontaneous
  Country: US (occurrence: US)
  Receive Date: 20190516
  Receipt Date: 20190516
  Transmission Date: 20190711
  Serious: No
  Sender: FDA-Public Use
  Company Number: None

PATIENT
  Sex: Female

DRUGS (1)
  1. ENBREL [Suspect]
     Active Substance: ETANERCEPT
     Indication: MYOPATHY
     Route: 058
     Dates: start: 20161013

REACTIONS (4)
  - Influenza [None]
  - Hyperhidrosis [None]
  - Pain [None]
  - Eye pain [None]
